FAERS Safety Report 7592021-5 (Version None)
Quarter: 2011Q2

REPORT INFORMATION
  Report Type: 
  Country: None (occurrence: None)
  Receive Date: 20110606
  Receipt Date: 20110130
  Transmission Date: 20111010
  Serious: Yes (Other)
  Sender: FDA-Public Use
  Company Number: US-SEPTODONT-201100019

PATIENT
  Sex: Male
  Weight: 90.7 kg

DRUGS (1)
  1. SEPTOCAINE [Suspect]
     Indication: LOCAL ANAESTHESIA
     Dosage: DENTAL
     Route: 004
     Dates: start: 20100310

REACTIONS (5)
  - ELECTRIC SHOCK [None]
  - DYSGEUSIA [None]
  - PARAESTHESIA ORAL [None]
  - PARAESTHESIA [None]
  - NERVE INJURY [None]
